FAERS Safety Report 9827675 (Version 1)
Quarter: 2013Q4

REPORT INFORMATION
  Report Type: Spontaneous
  Country: US (occurrence: None)
  Receive Date: 20131120
  Receipt Date: 20131120
  Transmission Date: 20140711
  Serious: No
  Sender: FDA-Public Use
  Company Number: 1000047323

PATIENT
  Age: 69 Year
  Sex: Female

DRUGS (11)
  1. VIIBRYD (VILAZODONE HYDROCHLORIDE) (10 MILLIGRAM, TABLETS) [Suspect]
     Dosage: 10 MG (10 MG, 1 IN 1 D, ORAL
     Route: 048
     Dates: start: 2012, end: 2012
  2. PROBIOTICS (PROBIOTICS) (PROBIOTICS) [Concomitant]
  3. LEVOTHYROXINE (LEVOTHYROXINE) SODIUM) (LEVOTHYROXINE SODIUM) [Concomitant]
  4. ISOSRBIDE (ISOSORBIDE) (ISOSORBIDE) [Concomitant]
  5. SINGULAIR (MONTELUKAST SODIUM) (MONTELUKAST SODIUM) [Concomitant]
  6. CRESTOR (ROSUVASTATIN CALCIUM) (ROSUVASTATIN CALCIUM) [Concomitant]
  7. ZETIA (EZETIMIBE ) (EZETIMIBE) [Concomitant]
  8. RAMIPRIL (RAMIPRIL) (RAMIPRIL) [Concomitant]
  9. ZOLPIDEM (ZOLPIDEM) (ZOLPIDEM) [Concomitant]
  10. OMEPRAZOLE (OMEPRAZOLE) (OMEPRAZOLE) [Concomitant]
  11. BYSTOLIC (NEBIVOLOL HYDROCHLORIDE) (TABLETS) (NEBIVOLOL HYDROCHLORIDE) [Concomitant]

REACTIONS (5)
  - Constipation [None]
  - Diarrhoea [None]
  - Abdominal distension [None]
  - Flatulence [None]
  - Musculoskeletal disorder [None]
